FAERS Safety Report 10165743 (Version 1)
Quarter: 2014Q2

REPORT INFORMATION
  Report Type: Spontaneous
  Country: US (occurrence: US)
  Receive Date: 20140510
  Receipt Date: 20140510
  Transmission Date: 20141212
  Serious: No
  Sender: FDA-Public Use
  Company Number: US-BRISTOL-MYERS SQUIBB COMPANY-19920990

PATIENT
  Age: 49 Year
  Sex: Female
  Weight: 89.34 kg

DRUGS (4)
  1. BYDUREON [Suspect]
     Indication: TYPE 2 DIABETES MELLITUS
     Route: 058
     Dates: start: 20131125
  2. METFORMIN HCL [Suspect]
     Dates: start: 20131124, end: 20131124
  3. GLIMEPIRIDE [Suspect]
     Dates: start: 20131124, end: 20131124
  4. EXENATIDE 10MCG PEN, DISPOSABLE DEVICE [Concomitant]

REACTIONS (2)
  - Blood glucose increased [Unknown]
  - Incorrect product storage [Unknown]
